FAERS Safety Report 11988917 (Version 3)
Quarter: 2021Q2

REPORT INFORMATION
  Report Type: Spontaneous
  Country: US (occurrence: US)
  Receive Date: 20160202
  Receipt Date: 20210603
  Transmission Date: 20210716
  Serious: No
  Sender: FDA-Public Use
  Company Number: US-ASTRAZENECA-2016SE07976

PATIENT
  Age: 699 Month
  Sex: Male
  Weight: 68.9 kg

DRUGS (4)
  1. DULERA [Concomitant]
     Active Substance: FORMOTEROL FUMARATE DIHYDRATE\MOMETASONE FUROATE
     Indication: LUNG DISORDER
     Route: 055
     Dates: start: 201501
  2. DUONEB [Concomitant]
     Active Substance: ALBUTEROL SULFATE\IPRATROPIUM BROMIDE
     Indication: LUNG DISORDER
     Route: 055
     Dates: start: 201506
  3. TUDORZA PRESSAIR [Suspect]
     Active Substance: ACLIDINIUM BROMIDE
     Indication: CHRONIC OBSTRUCTIVE PULMONARY DISEASE
     Route: 055
     Dates: start: 201501
  4. ALBUTEROL. [Concomitant]
     Active Substance: ALBUTEROL
     Indication: DYSPNOEA
     Dosage: UNKNOWN DOSE, AS REQUIRED
     Route: 055

REACTIONS (4)
  - Device defective [Unknown]
  - Dyspnoea [Unknown]
  - Product dose omission issue [Not Recovered/Not Resolved]
  - Device issue [Unknown]

NARRATIVE: CASE EVENT DATE: 201506
